FAERS Safety Report 17470020 (Version 1)
Quarter: 2020Q1

REPORT INFORMATION
  Report Type: Spontaneous
  Country: GB (occurrence: GB)
  Receive Date: 20200227
  Receipt Date: 20200227
  Transmission Date: 20200409
  Serious: Yes (Other)
  Sender: FDA-Public Use
  Company Number: GB-JNJFOC-20191132180

PATIENT
  Sex: Female

DRUGS (2)
  1. METOJECT [Suspect]
     Active Substance: METHOTREXATE SODIUM
     Indication: PRODUCT USED FOR UNKNOWN INDICATION
     Route: 065
  2. SIMPONI [Suspect]
     Active Substance: GOLIMUMAB
     Indication: PRODUCT USED FOR UNKNOWN INDICATION
     Dosage: 0.5 ML
     Route: 058

REACTIONS (6)
  - Gastrointestinal carcinoma [Not Recovered/Not Resolved]
  - Influenza [Not Recovered/Not Resolved]
  - Tonsillitis [Not Recovered/Not Resolved]
  - Product dose omission [Unknown]
  - Urinary tract infection [Not Recovered/Not Resolved]
  - Herpes virus infection [Not Recovered/Not Resolved]
